FAERS Safety Report 6753251-5 (Version None)
Quarter: 2010Q2

REPORT INFORMATION
  Report Type: 
  Country: None (occurrence: None)
  Receive Date: 20100603
  Receipt Date: 20100528
  Transmission Date: 20101027
  Serious: Yes (Life-Threatening, Other)
  Sender: FDA-Public Use
  Company Number: PHHY2010US34298

PATIENT
  Age: 70 Year
  Sex: Male

DRUGS (3)
  1. CYCLOSPORINE [Suspect]
     Indication: HEART TRANSPLANT
     Route: 048
  2. MYCOPHENOLATE MOFETIL [Suspect]
     Indication: HEART TRANSPLANT
  3. PREDNISONE [Suspect]
     Indication: HEART TRANSPLANT

REACTIONS (19)
  - ANAEMIA [None]
  - AORTIC RUPTURE [None]
  - AORTIC THROMBOSIS [None]
  - ASPERGILLOSIS [None]
  - BLOOD CREATININE INCREASED [None]
  - CARDIAC PSEUDOANEURYSM [None]
  - CARDIOPULMONARY BYPASS [None]
  - ENDOTRACHEAL INTUBATION [None]
  - HAEMATOCRIT DECREASED [None]
  - HAEMATOMA [None]
  - HAEMOGLOBIN DECREASED [None]
  - NECROTISING RETINITIS [None]
  - PULMONARY ARTERY STENOSIS [None]
  - PULMONARY VEIN STENOSIS [None]
  - PURULENCE [None]
  - SUPERIOR VENA CAVAL STENOSIS [None]
  - SUTURE RELATED COMPLICATION [None]
  - TRANSAMINASES INCREASED [None]
  - VISUAL ACUITY REDUCED [None]
